FAERS Safety Report 9509649 (Version 1)
Quarter: 2013Q3

REPORT INFORMATION
  Report Type: Spontaneous
  Country: US (occurrence: US)
  Receive Date: 20130909
  Receipt Date: 20130909
  Transmission Date: 20140515
  Serious: No
  Sender: FDA-Public Use
  Company Number: US-BRISTOL-MYERS SQUIBB COMPANY-18901439

PATIENT
  Age: 56 Year
  Sex: Female

DRUGS (3)
  1. ABILIFY TABS 30 MG [Suspect]
  2. PROZAC [Concomitant]
  3. FEMHRT [Concomitant]
     Dosage: 1DF: 1/5 UNITS NOS

REACTIONS (1)
  - Fatigue [Unknown]
